FAERS Safety Report 4386553-0 (Version None)
Quarter: 2004Q2

REPORT INFORMATION
  Report Type: 
  Country: None (occurrence: None)
  Receive Date: 20040623
  Receipt Date: 20040615
  Transmission Date: 20050107
  Serious: Yes (Other)
  Sender: FDA-Public Use
  Company Number: 2004040495

PATIENT
  Age: 45 Year
  Sex: Female

DRUGS (6)
  1. SORTIS (ATORVASTATIN) [Suspect]
     Indication: HYPERCHOLESTEROLAEMIA
     Dosage: 20 MG (20 MG, 1 IN 1 D), ORAL
     Route: 048
     Dates: end: 20040517
  2. ZOLOFT [Suspect]
     Indication: DEPRESSION
     Dosage: 20 MG (20 MG 1 IN 1 D), ORAL
     Route: 048
     Dates: end: 20040517
  3. KARVEA HCT (HYDROCHLOROTHIAZIDE, IRBESARTAN) [Suspect]
     Indication: ESSENTIAL HYPERTENSION
     Dosage: 150/12.5 MG (1 IN 1 D), ORAL
     Route: 048
     Dates: end: 20040517
  4. GLIMEPIRIDE [Suspect]
     Indication: DIABETES MELLITUS
     Dosage: 2 MG (2 MG, 1 IN 1 D), ORAL
     Route: 048
     Dates: end: 20040517
  5. TRAMADOL HCL [Suspect]
     Indication: ARTHRALGIA
     Dosage: 150 MG (50 MG, D), ORAL
     Route: 048
     Dates: end: 20040517
  6. PARACETAMOL (PARACETAMOL) [Suspect]
     Indication: ARTHRALGIA
     Dosage: 1 GRAM (1 GRAM, 1 IN 1 D), ORAL
     Route: 048
     Dates: end: 20040517

REACTIONS (2)
  - DRUG EXPOSURE DURING PREGNANCY [None]
  - PREGNANCY [None]
